FAERS Safety Report 4712114-7 (Version None)
Quarter: 2005Q2

REPORT INFORMATION
  Report Type: 
  Country: None (occurrence: None)
  Receive Date: 20050629
  Receipt Date: 20050324
  Transmission Date: 20051028
  Serious: No
  Sender: FDA-Public Use
  Company Number: 05P-163-0295118-00

PATIENT
  Age: 59 Year
  Sex: Female
  Weight: 78.0187 kg

DRUGS (8)
  1. HUMIRA [Suspect]
     Indication: RHEUMATOID ARTHRITIS
     Dosage: 40 MG, SUBCUTANEOUS
     Route: 058
     Dates: start: 20040101
  2. VICODIN [Concomitant]
  3. AMITRIPTYLINE HCL [Concomitant]
  4. PYRIDOSTIGMINE BROMIDE [Concomitant]
  5. GLIPIZIDE [Concomitant]
  6. GLUCOTROL [Concomitant]
  7. EVOC [Concomitant]
  8. DRUG FOR INCREASED CHOLESTEROL [Concomitant]

REACTIONS (1)
  - SINUSITIS [None]
